FAERS Safety Report 5885047-0 (Version None)
Quarter: 2008Q3

REPORT INFORMATION
  Report Type: 
  Country: None (occurrence: None)
  Receive Date: 20080912
  Receipt Date: 20080610
  Transmission Date: 20090109
  Serious: Yes (Hospitalization)
  Sender: FDA-Public Use
  Company Number: 2008US000811

PATIENT
  Age: 4 Year
  Sex: Male
  Weight: 17 kg

DRUGS (6)
  1. FK506-OINTMENT (TACROLIMUS OINTMENT) OINTMENT [Suspect]
     Indication: DERMATITIS ATOPIC
     Dosage: 0.03%, TOPICAL
     Route: 061
     Dates: start: 20041101
  2. PULMICORT-100 [Concomitant]
  3. ALBUTEROL [Concomitant]
  4. FLONASE [Concomitant]
  5. AUGMENTIN ES (AMOXICILLIN SODIUM) [Concomitant]
  6. ZYRTEC (PSEUDOEPHEDRONE HYDROCHLORIDE, CETIRIZINE HYRDOCHLORIDE) [Concomitant]

REACTIONS (11)
  - BRONCHIAL HYPERREACTIVITY [None]
  - HILAR LYMPHADENOPATHY [None]
  - NASAL CONGESTION [None]
  - NO THERAPEUTIC RESPONSE [None]
  - OTITIS MEDIA [None]
  - PNEUMONIA [None]
  - RESPIRATORY DISTRESS [None]
  - RESPIRATORY SYNCYTIAL VIRUS INFECTION [None]
  - SINUSITIS [None]
  - TYMPANIC MEMBRANE DISORDER [None]
  - TYMPANIC MEMBRANE HYPERAEMIA [None]
